FAERS Safety Report 15765548 (Version 3)
Quarter: 2019Q3

REPORT INFORMATION
  Report Type: Spontaneous
  Country: US (occurrence: US)
  Receive Date: 20181227
  Receipt Date: 20190927
  Transmission Date: 20191004
  Serious: Yes (Other)
  Sender: FDA-Public Use
  Company Number: US-SA-2018SA387551

PATIENT
  Age: 55 Year
  Sex: Female
  Weight: 72 kg

DRUGS (10)
  1. ZETIA [Concomitant]
     Active Substance: EZETIMIBE
  2. TAXOTERE [Suspect]
     Active Substance: DOCETAXEL
     Indication: BREAST CANCER FEMALE
     Dosage: UNK UNK, Q3W
     Route: 042
     Dates: start: 20060517, end: 20060517
  3. ARIMIDEX [Concomitant]
     Active Substance: ANASTROZOLE
     Dosage: 1 MG, QD
     Route: 065
  4. TAXOTERE [Suspect]
     Active Substance: DOCETAXEL
     Dosage: UNK UNK, Q3W
     Route: 042
     Dates: start: 20060719, end: 20060719
  5. NEOSAR [Concomitant]
     Active Substance: CYCLOPHOSPHAMIDE
     Indication: BREAST CANCER FEMALE
     Dosage: UNK UNK, UNK
     Route: 065
  6. CHANTIX [Concomitant]
     Active Substance: VARENICLINE TARTRATE
  7. CYTOXAN [Concomitant]
     Active Substance: CYCLOPHOSPHAMIDE
     Indication: BREAST CANCER FEMALE
     Dosage: UNK UNK, Q3W
     Route: 065
     Dates: start: 20060517, end: 20060517
  8. FISH OIL [Concomitant]
     Active Substance: FISH OIL
  9. AMBIEN [Concomitant]
     Active Substance: ZOLPIDEM TARTRATE
  10. CYTOXAN [Concomitant]
     Active Substance: CYCLOPHOSPHAMIDE
     Dosage: UNK UNK, Q3W
     Route: 065
     Dates: start: 20060719, end: 20060719

REACTIONS (3)
  - Emotional distress [Unknown]
  - Psychological trauma [Unknown]
  - Alopecia [Recovering/Resolving]

NARRATIVE: CASE EVENT DATE: 2006
